FAERS Safety Report 9423585 (Version 3)
Quarter: 2013Q4

REPORT INFORMATION
  Report Type: Report from Study
  Country: US (occurrence: US)
  Receive Date: 20130726
  Receipt Date: 20131104
  Transmission Date: 20140711
  Serious: Yes (Hospitalization, Other)
  Sender: FDA-Public Use
  Company Number: US-US-EMD SERONO, INC.-7224056

PATIENT
  Age: 60 Year
  Sex: Male

DRUGS (3)
  1. REBIF [Suspect]
     Indication: MULTIPLE SCLEROSIS
     Route: 058
     Dates: start: 20030902, end: 201306
  2. REBIF [Suspect]
     Route: 058
     Dates: start: 20130727
  3. MORPHINE [Concomitant]
     Indication: PRODUCT USED FOR UNKNOWN INDICATION

REACTIONS (4)
  - Renal cell carcinoma [Unknown]
  - Decubitus ulcer [Unknown]
  - Multiple sclerosis relapse [Recovered/Resolved]
  - Decubitus ulcer [Unknown]
